FAERS Safety Report 22094236 (Version 1)
Quarter: 2023Q1

REPORT INFORMATION
  Report Type: Spontaneous
  Country: US (occurrence: None)
  Receive Date: 20230314
  Receipt Date: 20230314
  Transmission Date: 20230418
  Serious: No
  Sender: FDA-Public Use
  Company Number: None

PATIENT
  Age: 78 Year
  Sex: Female
  Weight: 94.5 kg

DRUGS (10)
  1. IVIZIA [Suspect]
     Active Substance: POVIDONE
     Indication: Dry eye
     Dosage: 1 DROP AT BEDTIME OPHTHALMIC
     Route: 047
     Dates: start: 20230115, end: 20230228
  2. METOPROLOL [Concomitant]
     Active Substance: METOPROLOL
  3. GLYPZIDE [Concomitant]
  4. COUMADIN [Concomitant]
     Active Substance: WARFARIN SODIUM
  5. ETRANANAZOLE [Concomitant]
  6. VITAMINDS D [Concomitant]
  7. VITAMINDS E [Concomitant]
  8. VITAMINDS C [Concomitant]
  9. VITAMINDSB-COMPLEX [Concomitant]
  10. VITAMIN B12 [Concomitant]
     Active Substance: CYANOCOBALAMIN

REACTIONS (5)
  - Blepharitis [None]
  - Erythema of eyelid [None]
  - Visual impairment [None]
  - Vision blurred [None]
  - Reading disorder [None]

NARRATIVE: CASE EVENT DATE: 20230228
